FAERS Safety Report 24647067 (Version 1)
Quarter: 2024Q4

REPORT INFORMATION
  Report Type: Spontaneous
  Country: GB (occurrence: GB)
  Receive Date: 20241121
  Receipt Date: 20241121
  Transmission Date: 20250114
  Serious: Yes (Hospitalization)
  Sender: PFIZER
  Company Number: GB-PFIZER INC-PV202400149574

PATIENT
  Age: 77 Year
  Sex: Female

DRUGS (1)
  1. IBRANCE [Suspect]
     Active Substance: PALBOCICLIB
     Indication: Breast cancer female
     Dosage: 100 MG, CYCLIC (DAILY FOR 21 DAYS THEN 7 DAYS REST)

REACTIONS (2)
  - Dizziness [Not Recovered/Not Resolved]
  - Urinary tract infection [Not Recovered/Not Resolved]
